FAERS Safety Report 9387239 (Version 2)
Quarter: 2013Q3

REPORT INFORMATION
  Report Type: Spontaneous
  Country: JP (occurrence: None)
  Receive Date: 20130702
  Receipt Date: 20130719
  Transmission Date: 20140515
  Serious: Yes (Hospitalization)
  Sender: FDA-Public Use
  Company Number: TCI2013A03690

PATIENT
  Age: 84 Year
  Sex: Female

DRUGS (5)
  1. ACTOS [Suspect]
     Indication: TYPE 2 DIABETES MELLITUS
     Route: 048
     Dates: start: 200512, end: 2007
  2. THYRADIN-S [Suspect]
  3. OLMETEC (OLMESARTAN MEDOXOMIL) [Concomitant]
  4. BAYASPIRIN (ACETYLSALICYLIC ACID) (ACETYLSALICYLIC ACID) [Concomitant]
  5. NIFEDIPINE [Concomitant]

REACTIONS (3)
  - Cardiac failure [None]
  - Dyspnoea [None]
  - Cough [None]
